FAERS Safety Report 15530588 (Version 3)
Quarter: 2018Q4

REPORT INFORMATION
  Report Type: Report from Study
  Country: GB (occurrence: GB)
  Receive Date: 20181018
  Receipt Date: 20181123
  Transmission Date: 20190205
  Serious: Yes (Hospitalization, Other)
  Sender: FDA-Public Use
  Company Number: PHHY2018GB125675

PATIENT
  Age: 71 Year
  Sex: Female

DRUGS (1)
  1. KISQALI [Suspect]
     Active Substance: RIBOCICLIB
     Indication: BREAST CANCER METASTATIC
     Dosage: 600 MG, QD
     Route: 048
     Dates: start: 20181002

REACTIONS (6)
  - Fatigue [Unknown]
  - Decreased appetite [Unknown]
  - Blood glucose increased [Recovered/Resolved]
  - Pain [Unknown]
  - Cellulitis [Recovered/Resolved]
  - Musculoskeletal pain [Unknown]

NARRATIVE: CASE EVENT DATE: 20181005
